FAERS Safety Report 5935544-4 (Version None)
Quarter: 2008Q4

REPORT INFORMATION
  Report Type: 
  Country: None (occurrence: None)
  Receive Date: 20081030
  Receipt Date: 20080922
  Transmission Date: 20090506
  Serious: No
  Sender: FDA-Public Use
  Company Number: US-BAYER-200813849BCC

PATIENT
  Age: 20 Year
  Sex: Female
  Weight: 66 kg

DRUGS (4)
  1. ALEVE (CAPLET) [Suspect]
     Indication: DYSMENORRHOEA
     Dosage: TOTAL DAILY DOSE: 660 MG  UNIT DOSE: 220 MG
     Route: 048
     Dates: start: 20080921
  2. MIDOL [Suspect]
     Indication: DYSMENORRHOEA
     Route: 048
     Dates: start: 20080921
  3. ORAL CONTRACEPTIVES [Concomitant]
     Indication: ORAL CONTRACEPTION
  4. AMOXICILLIN [Concomitant]
     Indication: ACNE

REACTIONS (1)
  - ABDOMINAL PAIN [None]
